FAERS Safety Report 9107206 (Version 1)
Quarter: 2013Q1

REPORT INFORMATION
  Report Type: Spontaneous
  Country: US (occurrence: US)
  Receive Date: 20130221
  Receipt Date: 20130221
  Transmission Date: 20140127
  Serious: Yes (Congenital Anomaly, Other)
  Sender: FDA-Public Use
  Company Number: US-WATSON-2013-02852

PATIENT
  Sex: 0

DRUGS (3)
  1. ETOPOSIDE [Suspect]
     Indication: OVARIAN CANCER
     Dosage: UNK, UNKNOWN
     Route: 064
  2. CISPLATIN [Suspect]
     Indication: OVARIAN CANCER
     Dosage: UNK, UNKNOWN
     Route: 064
  3. BLEOMYCIN [Suspect]
     Indication: OVARIAN CANCER
     Dosage: UNK, UNKNOWN
     Route: 064

REACTIONS (6)
  - Deafness congenital [Unknown]
  - Foetal growth restriction [Unknown]
  - Motor developmental delay [Unknown]
  - Speech disorder developmental [Unknown]
  - Gene mutation [Unknown]
  - Foetal exposure during pregnancy [Unknown]
